FAERS Safety Report 5247059-X (Version None)
Quarter: 2007Q1

REPORT INFORMATION
  Report Type: 
  Country: None (occurrence: None)
  Receive Date: 20070221
  Receipt Date: 20070207
  Transmission Date: 20070707
  Serious: Yes (Death)
  Sender: FDA-Public Use
  Company Number: 2007S1001183

PATIENT
  Sex: Male

DRUGS (2)
  1. FENTANYL TRANSDERMAL SYSTEM [Suspect]
     Dates: end: 20060501
  2. ALCOHOL /00002101/ [Suspect]
     Dates: end: 20060501

REACTIONS (2)
  - MALAISE [None]
  - OVERDOSE [None]
